FAERS Safety Report 8607772-0 (Version None)
Quarter: 2012Q3

REPORT INFORMATION
  Report Type: 
  Country: None (occurrence: None)
  Receive Date: 20120821
  Receipt Date: 20120814
  Transmission Date: 20120928
  Serious: Yes (Hospitalization)
  Sender: FDA-Public Use
  Company Number: PHHY2012FR071328

PATIENT
  Age: 79 Year
  Sex: Male

DRUGS (7)
  1. TRILEPTAL [Suspect]
     Dosage: 2 DF, DAILY
     Dates: start: 20120726, end: 20120806
  2. BISOPROLOL FUMARATE [Concomitant]
     Dosage: 10 MG, BID
  3. CLOBAZAM [Concomitant]
  4. POTASSIUM CHLORIDE [Concomitant]
  5. INDAPAMIDE [Concomitant]
     Dosage: 1 DF, QD
  6. KEPPRA [Concomitant]
     Dosage: 500 MG, TID
     Dates: start: 20110801
  7. PRAVASTATIN [Suspect]
     Dosage: 40 MG, QD
     Dates: end: 20120806

REACTIONS (2)
  - CONVULSION [None]
  - HYPONATRAEMIA [None]
